FAERS Safety Report 4774808-7 (Version None)
Quarter: 2005Q3

REPORT INFORMATION
  Report Type: 
  Country: None (occurrence: None)
  Receive Date: 20050919
  Receipt Date: 20050908
  Transmission Date: 20060218
  Serious: Yes (Death)
  Sender: FDA-Public Use
  Company Number: T0S-ESP-02754-01

PATIENT
  Age: 79 Year
  Sex: Female

DRUGS (5)
  1. MEMANTINE HCL [Suspect]
     Indication: DEMENTIA ALZHEIMER'S TYPE
  2. ANTIHYPERTENSIVES [Concomitant]
  3. LEVODOPA [Concomitant]
  4. CEFUROXIME AXETIL [Concomitant]
  5. DIGOXIN [Concomitant]

REACTIONS (2)
  - SCAB [None]
  - SEPSIS [None]
